FAERS Safety Report 5154625-9 (Version None)
Quarter: 2006Q4

REPORT INFORMATION
  Report Type: 
  Country: None (occurrence: None)
  Receive Date: 20061113
  Receipt Date: 20061030
  Transmission Date: 20070319
  Serious: Yes (Other)
  Sender: FDA-Public Use
  Company Number: 2006119916

PATIENT
  Age: 59 Year
  Sex: Male
  Weight: 64.4 kg

DRUGS (1)
  1. LYRICA [Suspect]
     Indication: NEURALGIA
     Dosage: 150 MG (75 MG, 2 IN 1 D), ORAL
     Route: 048
     Dates: start: 20060804

REACTIONS (2)
  - EUPHORIC MOOD [None]
  - NON-HODGKIN'S LYMPHOMA [None]
